FAERS Safety Report 4383642-1 (Version None)
Quarter: 2004Q2

REPORT INFORMATION
  Report Type: 
  Country: None (occurrence: None)
  Receive Date: 20040623
  Receipt Date: 20040510
  Transmission Date: 20050107
  Serious: Yes (Other)
  Sender: FDA-Public Use
  Company Number: US-GLAXOSMITHKLINE-A0510227A

PATIENT
  Age: 37 Year
  Sex: Female
  Weight: 109.1 kg

DRUGS (4)
  1. ADVAIR DISKUS 100/50 [Suspect]
     Indication: ASTHMA
     Dosage: 1PUFF TWICE PER DAY
     Route: 055
     Dates: start: 20020501, end: 20021101
  2. SEREVENT [Suspect]
     Indication: ASTHMA
     Dosage: 1PUFF TWICE PER DAY
     Route: 055
     Dates: start: 20040401, end: 20040401
  3. ALBUTEROL [Suspect]
  4. FLOVENT [Suspect]

REACTIONS (3)
  - ASTHMA [None]
  - BRONCHITIS [None]
  - DYSHIDROSIS [None]
